FAERS Safety Report 7377814-1 (Version None)
Quarter: 2011Q1

REPORT INFORMATION
  Report Type: 
  Country: None (occurrence: None)
  Receive Date: 20110328
  Receipt Date: 20110323
  Transmission Date: 20110831
  Serious: Yes (Hospitalization, Other)
  Sender: FDA-Public Use
  Company Number: US-PFIZER INC-2011065407

PATIENT
  Sex: Female

DRUGS (1)
  1. SUTENT [Suspect]
     Indication: RENAL CELL CARCINOMA
     Dosage: 50 MG, DAILY
     Route: 048
     Dates: start: 20110228, end: 20110314

REACTIONS (5)
  - PYREXIA [None]
  - BLOOD TEST ABNORMAL [None]
  - VOMITING [None]
  - HEADACHE [None]
  - NAUSEA [None]
